FAERS Safety Report 4641166-8 (Version None)
Quarter: 2005Q2

REPORT INFORMATION
  Report Type: 
  Country: None (occurrence: None)
  Receive Date: 20050421
  Receipt Date: 20050411
  Transmission Date: 20051028
  Serious: Yes (Death, Other)
  Sender: FDA-Public Use
  Company Number: US-BRISTOL-MYERS SQUIBB COMPANY-12938437

PATIENT
  Age: 43 Year
  Sex: Female

DRUGS (1)
  1. SERZONE [Suspect]
     Dates: start: 20010101, end: 20020101

REACTIONS (3)
  - DEATH [None]
  - HEPATIC NEOPLASM MALIGNANT [None]
  - OESOPHAGEAL CARCINOMA [None]
